FAERS Safety Report 15780702 (Version 2)
Quarter: 2019Q1

REPORT INFORMATION
  Report Type: Report from Study
  Country: US (occurrence: US)
  Receive Date: 20190102
  Receipt Date: 20190204
  Transmission Date: 20190417
  Serious: Yes (Other)
  Sender: FDA-Public Use
  Company Number: US-ASTELLAS-2019US000016

PATIENT
  Sex: Male

DRUGS (1)
  1. ENZALUTAMIDE [Suspect]
     Active Substance: ENZALUTAMIDE
     Indication: HORMONE-REFRACTORY PROSTATE CANCER
     Route: 048

REACTIONS (7)
  - Choking [Unknown]
  - Fatigue [Unknown]
  - Product size issue [Unknown]
  - Dysphagia [Unknown]
  - Hyperhidrosis [Unknown]
  - Dizziness [Unknown]
  - Diarrhoea [Unknown]
